FAERS Safety Report 10185350 (Version 1)
Quarter: 2014Q2

REPORT INFORMATION
  Report Type: Spontaneous
  Country: RO (occurrence: RO)
  Receive Date: 20140521
  Receipt Date: 20140521
  Transmission Date: 20141212
  Serious: Yes (Hospitalization)
  Sender: FDA-Public Use
  Company Number: RO-ACTAVIS-2014-07432

PATIENT
  Age: 65 Year
  Sex: Male

DRUGS (3)
  1. FARMORUBICIN [Suspect]
     Indication: CHONDROSARCOMA
     Dosage: 30 MG/M2, CYCLICAL (2 CYCLES)
     Route: 042
     Dates: start: 20140120, end: 20140228
  2. IFOSFAMIDE [Suspect]
     Indication: CHONDROSARCOMA
     Dosage: 2000 MG/M2, CYCLICAL
     Route: 042
     Dates: start: 20140120, end: 20140228
  3. MESNA [Suspect]
     Indication: CHONDROSARCOMA
     Dosage: 2000 MG/M2, CYCLICAL
     Route: 042
     Dates: start: 20140120, end: 20140228

REACTIONS (1)
  - Hepatocellular injury [Recovered/Resolved]
